FAERS Safety Report 21889642 (Version 1)
Quarter: 2023Q1

REPORT INFORMATION
  Report Type: Spontaneous
  Country: CA (occurrence: CA)
  Receive Date: 20230120
  Receipt Date: 20230120
  Transmission Date: 20230417
  Serious: Yes (Other)
  Sender: FDA-Public Use
  Company Number: CA-JNJFOC-20230132314

PATIENT

DRUGS (2)
  1. NICORETTE [Suspect]
     Active Substance: NICOTINE
     Indication: Smoking cessation therapy
     Dosage: UNK (WHEN WOKE UP AT NIGHT TOOK A LOZENGE)
     Route: 065
     Dates: start: 202005
  2. NICORETTE [Suspect]
     Active Substance: NICOTINE
     Dosage: UNK (WHEN WOKE UP AT NIGHT TOOK A LOZENGE)
     Route: 065
     Dates: start: 202005

REACTIONS (3)
  - Generalised tonic-clonic seizure [Recovered/Resolved]
  - Nicotine dependence [Not Recovered/Not Resolved]
  - Intentional product use issue [Not Recovered/Not Resolved]

NARRATIVE: CASE EVENT DATE: 20220101
